FAERS Safety Report 4899805-2 (Version None)
Quarter: 2006Q1

REPORT INFORMATION
  Report Type: 
  Country: None (occurrence: None)
  Receive Date: 20060113
  Receipt Date: 20050919
  Transmission Date: 20060701
  Serious: No
  Sender: FDA-Public Use
  Company Number: 2005SP002831

PATIENT
  Age: 63 Year
  Sex: Male
  Weight: 69.8539 kg

DRUGS (7)
  1. LUNESTA [Suspect]
     Indication: INSOMNIA
     Dosage: 2 MG;HS;ORAL
     Route: 048
     Dates: start: 20050910, end: 20050910
  2. GLIPIZIDE [Concomitant]
  3. LEVOTHYROXINE [Concomitant]
  4. TERAZOSIN [Concomitant]
  5. CLONAZEPAM [Concomitant]
  6. AMITRIPTYLINE HCL [Concomitant]
  7. LISINOPRIL [Concomitant]

REACTIONS (2)
  - DRUG INEFFECTIVE [None]
  - INITIAL INSOMNIA [None]
